FAERS Safety Report 15994904 (Version 2)
Quarter: 2019Q2

REPORT INFORMATION
  Report Type: Spontaneous
  Country: US (occurrence: US)
  Receive Date: 20190222
  Receipt Date: 20190405
  Transmission Date: 20190711
  Serious: Yes (Hospitalization, Other)
  Sender: FDA-Public Use
  Company Number: US-ASTRAZENECA-2019SE29015

PATIENT
  Age: 20014 Day
  Sex: Female
  Weight: 127 kg

DRUGS (1)
  1. BYDUREON [Suspect]
     Active Substance: EXENATIDE
     Indication: TYPE 2 DIABETES MELLITUS
     Route: 065
     Dates: start: 2018

REACTIONS (8)
  - Plasma cell myeloma [Unknown]
  - Intervertebral disc degeneration [Unknown]
  - Memory impairment [Unknown]
  - Hypertension [Unknown]
  - Tumour compression [Unknown]
  - Wrong technique in device usage process [Unknown]
  - Device issue [Unknown]
  - Product quality issue [Unknown]

NARRATIVE: CASE EVENT DATE: 20190211
